FAERS Safety Report 25641512 (Version 1)
Quarter: 2025Q3

REPORT INFORMATION
  Report Type: Spontaneous
  Country: US (occurrence: US)
  Receive Date: 20250804
  Receipt Date: 20250804
  Transmission Date: 20251020
  Serious: No
  Sender: NEUROCRINE BIOSCIENCES
  Company Number: US-NEUROCRINE BIOSCIENCES INC.-2025NBI09671

PATIENT

DRUGS (2)
  1. INGREZZA [Suspect]
     Active Substance: VALBENAZINE DITOSYLATE
     Indication: Tardive dyskinesia
     Route: 065
  2. PALIPERIDONE [Concomitant]
     Active Substance: PALIPERIDONE

REACTIONS (4)
  - Brain fog [Unknown]
  - Parkinsonism [Unknown]
  - Drooling [Unknown]
  - Sedation [Unknown]
